FAERS Safety Report 12730466 (Version 1)
Quarter: 2016Q3

REPORT INFORMATION
  Report Type: Report from Study
  Country: US (occurrence: US)
  Receive Date: 20160909
  Receipt Date: 20160909
  Transmission Date: 20161109
  Serious: Yes (Hospitalization)
  Sender: FDA-Public Use
  Company Number: US-GILEAD-2016-0227543

PATIENT
  Sex: Male

DRUGS (4)
  1. METOPROLOL. [Concomitant]
     Active Substance: METOPROLOL
     Dosage: 25 UNK, UNK
     Route: 048
     Dates: start: 201503
  2. RANOLAZINE [Suspect]
     Active Substance: RANOLAZINE
     Indication: ANGINA PECTORIS
     Dosage: 2 UNK, UNK
     Route: 048
     Dates: start: 20141217
  3. METOPROLOL. [Concomitant]
     Active Substance: METOPROLOL
     Dosage: 50 MG, BID
     Route: 048
  4. RANOLAZINE [Suspect]
     Active Substance: RANOLAZINE
     Dosage: 1 DF (TAB), BID
     Route: 048
     Dates: start: 20141210, end: 20141216

REACTIONS (1)
  - Sinus bradycardia [Recovered/Resolved]

NARRATIVE: CASE EVENT DATE: 20150302
